FAERS Safety Report 9357723 (Version 1)
Quarter: 2013Q2

REPORT INFORMATION
  Report Type: Spontaneous
  Country: CA (occurrence: CA)
  Receive Date: 20130620
  Receipt Date: 20130620
  Transmission Date: 20140414
  Serious: Yes (Death)
  Sender: FDA-Public Use
  Company Number: CA-PFIZER INC-2013182207

PATIENT
  Age: 40 Year
  Sex: Female

DRUGS (2)
  1. XALKORI [Suspect]
     Indication: SMALL CELL LUNG CANCER
     Dosage: 250 MG, 2X/DAY
     Dates: start: 20130426
  2. XALKORI [Suspect]
     Dosage: 200 MG, 2X/DAY
     Dates: start: 20130530

REACTIONS (1)
  - Death [Fatal]
